FAERS Safety Report 4447924-7 (Version None)
Quarter: 2004Q3

REPORT INFORMATION
  Report Type: 
  Country: None (occurrence: None)
  Receive Date: 20040909
  Receipt Date: 20040909
  Transmission Date: 20050211
  Serious: Yes (Other)
  Sender: FDA-Public Use
  Company Number: None

PATIENT
  Age: 31 Year
  Sex: Female
  Weight: 72.5755 kg

DRUGS (1)
  1. EFFEXOR XR [Suspect]
     Indication: DEPRESSION
     Dosage: 225MG  1XDAY  ORAL
     Route: 048
     Dates: start: 20000901, end: 20040906

REACTIONS (4)
  - AMNESIA [None]
  - ANGER [None]
  - CRYING [None]
  - DRUG WITHDRAWAL SYNDROME [None]
